FAERS Safety Report 24925902 (Version 2)
Quarter: 2025Q1

REPORT INFORMATION
  Report Type: Report from Study
  Country: US (occurrence: US)
  Receive Date: 20250205
  Receipt Date: 20250207
  Transmission Date: 20250408
  Serious: Yes (Death)
  Sender: ABBVIE
  Company Number: US-ABBVIE-6118338

PATIENT
  Age: 61 Year
  Sex: Male

DRUGS (2)
  1. VENCLEXTA [Suspect]
     Active Substance: VENETOCLAX
     Indication: Myeloproliferative neoplasm
     Dosage: FORM STRENGTH: 100 MG FOUR TABLETS EVERY DAY
     Route: 048
  2. VENCLEXTA [Suspect]
     Active Substance: VENETOCLAX
     Indication: Myeloproliferative neoplasm
     Dosage: FORM STRENGTH: 200 MG, TWO TABLETS
     Route: 048

REACTIONS (1)
  - Death [Fatal]
